FAERS Safety Report 5405511-8 (Version None)
Quarter: 2007Q3

REPORT INFORMATION
  Report Type: 
  Country: None (occurrence: None)
  Receive Date: 20070803
  Receipt Date: 20070723
  Transmission Date: 20080115
  Serious: Yes (Other)
  Sender: FDA-Public Use
  Company Number: BR-PFIZER INC-2007061569

PATIENT
  Sex: Female
  Weight: 60 kg

DRUGS (5)
  1. XALATAN [Suspect]
     Indication: GLAUCOMA
     Route: 047
  2. OLOPATADINE HYDROCHLORIDE [Concomitant]
     Dates: end: 20070720
  3. BRIMONIDINE TARTRATE [Concomitant]
  4. ALL OTHER THERAPEUTIC PRODUCTS [Concomitant]
  5. ANTIHYPERTENSIVES [Concomitant]

REACTIONS (3)
  - ERYTHEMA OF EYELID [None]
  - EYE OEDEMA [None]
  - OCULAR HYPERAEMIA [None]
